FAERS Safety Report 14082503 (Version 1)
Quarter: 2017Q4

REPORT INFORMATION
  Report Type: Spontaneous
  Country: US (occurrence: None)
  Receive Date: 20171013
  Receipt Date: 20171013
  Transmission Date: 20180321
  Serious: Yes (Other)
  Sender: FDA-Public Use
  Company Number: None

PATIENT
  Age: 88 Year
  Sex: Female
  Weight: 50.98 kg

DRUGS (9)
  1. MULTI-VITAMINS [Concomitant]
  2. SMOOTH MOVE TEA [Concomitant]
     Active Substance: SENNA LEAF
  3. MYLANTA [Concomitant]
     Active Substance: ALUMINUM HYDROXIDE\DIMETHICONE\MAGNESIUM HYDROXIDE
  4. COQ10 [Concomitant]
     Active Substance: UBIDECARENONE
  5. VITAMINS [Concomitant]
     Active Substance: VITAMINS
  6. MIRALAX [Concomitant]
     Active Substance: POLYETHYLENE GLYCOL 3350
  7. VALSARTAN. [Concomitant]
     Active Substance: VALSARTAN
  8. SUPPOSITORIES [Concomitant]
  9. LORAZEPAM 0.5MG TAB ACTA (GENERIC FOR: ATIVAN 0.5 MG TAB VALE) [Suspect]
     Active Substance: LORAZEPAM
     Indication: ANXIETY
     Dosage: AS NEEDED (1 PILL) AS NEEDED MOUTH
     Route: 048
     Dates: end: 20171004

REACTIONS (15)
  - Confusional state [None]
  - Loss of personal independence in daily activities [None]
  - Balance disorder [None]
  - Dysphonia [None]
  - Fatigue [None]
  - Hallucination [None]
  - Suicidal ideation [None]
  - Anxiety [None]
  - Depressed mood [None]
  - Dizziness [None]
  - Amnesia [None]
  - Somnolence [None]
  - Headache [None]
  - Decreased appetite [None]
  - Weight decreased [None]

NARRATIVE: CASE EVENT DATE: 20170925
